FAERS Safety Report 9402443 (Version 2)
Quarter: 2013Q3

REPORT INFORMATION
  Report Type: Report from Study
  Country: DE (occurrence: DE)
  Receive Date: 20130716
  Receipt Date: 20130726
  Transmission Date: 20140515
  Serious: Yes (Hospitalization, Disabling)
  Sender: FDA-Public Use
  Company Number: DE-SANOFI-AVENTIS-2013SA070144

PATIENT
  Age: 72 Year
  Sex: Male

DRUGS (11)
  1. CABAZITAXEL [Suspect]
     Indication: PROSTATE CANCER METASTATIC
     Route: 042
     Dates: start: 20130208, end: 20130208
  2. CABAZITAXEL [Suspect]
     Indication: PROSTATE CANCER METASTATIC
     Route: 042
     Dates: start: 20130614, end: 20130614
  3. PREDNISOLONE [Suspect]
     Indication: PROSTATE CANCER METASTATIC
     Route: 048
     Dates: start: 20130208, end: 20130704
  4. LYRICA [Concomitant]
     Route: 048
     Dates: start: 20130421
  5. MARCUMAR [Concomitant]
     Route: 048
     Dates: start: 2009
  6. NEXIUM [Concomitant]
     Route: 048
     Dates: start: 20130421
  7. NOVAMINSULFON [Concomitant]
     Route: 048
     Dates: start: 20130421
  8. SEVREDOL [Concomitant]
     Route: 048
     Dates: start: 20130421
  9. MOVICOL [Concomitant]
     Route: 048
     Dates: start: 20130222
  10. DICLOFENAC [Concomitant]
     Route: 048
     Dates: start: 20130322
  11. NEULASTA [Concomitant]
     Route: 058
     Dates: start: 20130506

REACTIONS (1)
  - Spinal fracture [Not Recovered/Not Resolved]
